FAERS Safety Report 8432169-6 (Version None)
Quarter: 2012Q2

REPORT INFORMATION
  Report Type: 
  Country: None (occurrence: None)
  Receive Date: 20120606
  Receipt Date: 20120521
  Transmission Date: 20120825
  Serious: Yes (Death)
  Sender: FDA-Public Use
  Company Number: FK201201442

PATIENT
  Age: 83 Year
  Sex: Male

DRUGS (1)
  1. HEPARIN [Suspect]
     Indication: PROPHYLAXIS
     Dosage: UNKNOWN

REACTIONS (3)
  - HEPARIN-INDUCED THROMBOCYTOPENIA [None]
  - SKIN NECROSIS [None]
  - PERIPHERAL EMBOLISM [None]
